FAERS Safety Report 9581372 (Version 2)
Quarter: 2013Q4

REPORT INFORMATION
  Report Type: Report from Study
  Country: FR (occurrence: FR)
  Receive Date: 20131002
  Receipt Date: 20131030
  Transmission Date: 20140711
  Serious: Yes (Hospitalization)
  Sender: FDA-Public Use
  Company Number: FR-VIIV HEALTHCARE LIMITED-B0926451A

PATIENT
  Age: 70 Year
  Sex: Male
  Weight: 70 kg

DRUGS (8)
  1. BLINDED TRIAL MEDICATION-VIIV [Suspect]
     Indication: HIV INFECTION
     Route: 048
     Dates: start: 20130822, end: 20130922
  2. BACTRIM [Suspect]
     Indication: PNEUMOCYSTIS JIROVECII PNEUMONIA
     Dates: start: 20130814, end: 20130922
  3. TRUVADA [Suspect]
     Indication: HIV INFECTION
     Dosage: 200MG PER DAY
     Route: 048
     Dates: start: 20130822, end: 20130922
  4. NORVIR [Suspect]
     Indication: HIV INFECTION
     Dosage: 100MG PER DAY
     Route: 048
     Dates: start: 20130822
  5. AMAREL [Suspect]
     Indication: DIABETES MELLITUS
     Dates: start: 19720101, end: 20130923
  6. PREZISTA [Suspect]
     Indication: HIV INFECTION
     Dosage: 800MG PER DAY
     Route: 048
     Dates: start: 20130822
  7. AMLOR [Concomitant]
     Dates: start: 19990101
  8. KIVEXA [Concomitant]
     Indication: HIV INFECTION
     Dosage: 600MG PER DAY
     Route: 048
     Dates: start: 20130820

REACTIONS (1)
  - Renal impairment [Recovering/Resolving]
